FAERS Safety Report 9999688 (Version 1)
Quarter: 2014Q1

REPORT INFORMATION
  Report Type: Spontaneous
  Country: US (occurrence: US)
  Receive Date: 20140312
  Receipt Date: 20140312
  Transmission Date: 20141002
  Serious: No
  Sender: FDA-Public Use
  Company Number: US-BAYER-2014-032930

PATIENT
  Sex: Female

DRUGS (3)
  1. CIPRO [Suspect]
  2. BAYCOL [Suspect]
  3. PLAVIX [Concomitant]

REACTIONS (2)
  - Tendon injury [Not Recovered/Not Resolved]
  - Muscle disorder [Not Recovered/Not Resolved]
